FAERS Safety Report 9038980 (Version 2)
Quarter: 2013Q1

REPORT INFORMATION
  Report Type: Spontaneous
  Country: US (occurrence: US)
  Receive Date: 20130129
  Receipt Date: 20130204
  Transmission Date: 20140127
  Serious: Yes (Other)
  Sender: FDA-Public Use
  Company Number: US-TEVA-382793USA

PATIENT
  Sex: Female

DRUGS (6)
  1. WARFARIN [Suspect]
     Indication: CARDIAC PACEMAKER INSERTION
  2. WARFARIN [Suspect]
     Indication: STENT PLACEMENT
  3. WARFARIN [Suspect]
     Indication: ATRIAL FIBRILLATION
  4. WARFARIN [Suspect]
     Indication: CARDIAC PACEMAKER INSERTION
     Dosage: 2MG/5 DAYS A WEEK
  5. WARFARIN [Suspect]
     Indication: STENT PLACEMENT
     Dosage: 3 MG TWICE A WEEK
  6. WARFARIN [Suspect]
     Indication: ATRIAL FIBRILLATION

REACTIONS (1)
  - Macular degeneration [Unknown]
